FAERS Safety Report 18210751 (Version 5)
Quarter: 2020Q4

REPORT INFORMATION
  Report Type: Spontaneous
  Country: SE (occurrence: SE)
  Receive Date: 20200829
  Receipt Date: 20201201
  Transmission Date: 20210113
  Serious: Yes (Other)
  Sender: FDA-Public Use
  Company Number: NVSC2020SE231366

PATIENT
  Age: 70 Year
  Sex: Female
  Weight: 70 kg

DRUGS (2)
  1. BEOVU [Suspect]
     Active Substance: BROLUCIZUMAB-DBLL
     Indication: NEOVASCULAR AGE-RELATED MACULAR DEGENERATION
     Dosage: UNK
     Route: 031
     Dates: start: 20200722
  2. EYLEA [Suspect]
     Active Substance: AFLIBERCEPT
     Indication: NEOVASCULAR AGE-RELATED MACULAR DEGENERATION
     Dosage: UNK, RECEIVED 35 INJECTIONS
     Route: 065
     Dates: start: 2014, end: 20200527

REACTIONS (7)
  - Keratic precipitates [Recovered/Resolved]
  - Visual acuity reduced [Recovered/Resolved]
  - Eye irritation [Recovered/Resolved]
  - Vitreous floaters [Recovered/Resolved]
  - Retinal exudates [Recovered/Resolved]
  - Vitritis [Unknown]
  - Vitreous opacities [Recovering/Resolving]

NARRATIVE: CASE EVENT DATE: 20200810
